FAERS Safety Report 11229916 (Version 1)
Quarter: 2015Q3

REPORT INFORMATION
  Report Type: Spontaneous
  Country: ES (occurrence: ES)
  Receive Date: 20150701
  Receipt Date: 20150701
  Transmission Date: 20151125
  Serious: Yes (Hospitalization, Other)
  Sender: FDA-Public Use
  Company Number: ES-BRISTOL-MYERS SQUIBB COMPANY-BMS-2015-041137

PATIENT
  Age: 63 Year
  Sex: Male

DRUGS (7)
  1. ALENDRONIC ACID [Concomitant]
     Active Substance: ALENDRONIC ACID
     Indication: NIEMANN-PICK DISEASE
     Dosage: 70 MG, QWK
     Route: 065
  2. ZAVESCA                            /01588502/ [Concomitant]
     Indication: NIEMANN-PICK DISEASE
     Dosage: UNK, TID
     Route: 065
     Dates: start: 20140929
  3. LITHIUM. [Concomitant]
     Active Substance: LITHIUM
     Indication: BIPOLAR DISORDER
     Dosage: 400 MG, BID
     Route: 065
  4. ARIPIPRAZOLE. [Suspect]
     Active Substance: ARIPIPRAZOLE
     Dosage: 5 MG, QD
     Route: 048
  5. ARIPIPRAZOLE. [Suspect]
     Active Substance: ARIPIPRAZOLE
     Indication: BIPOLAR I DISORDER
     Dosage: 7 MG, QD
     Route: 048
  6. ARIPIPRAZOLE. [Suspect]
     Active Substance: ARIPIPRAZOLE
     Indication: BIPOLAR I DISORDER
     Dosage: 10 MG, QD
     Route: 048
  7. IDEOS [Concomitant]
     Active Substance: CALCIUM CARBONATE\CHOLECALCIFEROL
     Indication: NIEMANN-PICK DISEASE
     Dosage: 1 DF, QD
     Route: 065

REACTIONS (7)
  - Suicidal ideation [Unknown]
  - Emotional disorder [Unknown]
  - Insomnia [Unknown]
  - Gait disturbance [Not Recovered/Not Resolved]
  - Off label use [Recovered/Resolved]
  - Apathy [Unknown]
  - Dysarthria [Not Recovered/Not Resolved]
